FAERS Safety Report 7133905-1 (Version None)
Quarter: 2010Q4

REPORT INFORMATION
  Report Type: 
  Country: None (occurrence: None)
  Receive Date: 20101203
  Receipt Date: 20101110
  Transmission Date: 20110411
  Serious: Yes (Hospitalization)
  Sender: FDA-Public Use
  Company Number: US-BAYER-201030660NA

PATIENT

DRUGS (10)
  1. OCELLA [Suspect]
     Indication: ORAL CONTRACEPTION
     Route: 048
     Dates: start: 20081001, end: 20091201
  2. MAXALT [Concomitant]
  3. LEXAPRO [Concomitant]
  4. ZEGERID [Concomitant]
  5. PRILOSEC [Concomitant]
  6. PHENTERMINE [Concomitant]
  7. ALBUTEROL [Concomitant]
  8. YASMIN [Concomitant]
  9. YAZ [Concomitant]
  10. KAPIDEX [Concomitant]

REACTIONS (10)
  - ANXIETY [None]
  - BILE DUCT OBSTRUCTION [None]
  - CHOLECYSTITIS CHRONIC [None]
  - CONSTIPATION [None]
  - GASTROOESOPHAGEAL REFLUX DISEASE [None]
  - HEADACHE [None]
  - HEPATOMEGALY [None]
  - PANIC ATTACK [None]
  - SENSATION OF FOREIGN BODY [None]
  - UTERINE LEIOMYOMA [None]
